FAERS Safety Report 13139520 (Version 2)
Quarter: 2017Q1

REPORT INFORMATION
  Report Type: Spontaneous
  Country: US (occurrence: US)
  Receive Date: 20170123
  Receipt Date: 20170224
  Transmission Date: 20170428
  Serious: Yes (Hospitalization)
  Sender: FDA-Public Use
  Company Number: US-HQ SPECIALTY-US-2017INT000011

PATIENT

DRUGS (5)
  1. TAXOL [Suspect]
     Active Substance: PACLITAXEL
     Indication: BREAST CANCER FEMALE
     Dosage: UNK
     Dates: start: 201503
  2. ZOFRAN [Concomitant]
     Active Substance: ONDANSETRON HYDROCHLORIDE
     Indication: PRODUCT USED FOR UNKNOWN INDICATION
     Dosage: Q 6 HRS, PRN
     Dates: start: 20150316
  3. TAXOL [Suspect]
     Active Substance: PACLITAXEL
     Dosage: 75% DOSE DECREASE
     Dates: end: 2015
  4. CALTRATE D PLUS MINERALS [Concomitant]
     Active Substance: CALCIUM\CHOLECALCIFEROL\COPPER\MAGNESIUM\MANGANESE\ZINC
     Indication: PRODUCT USED FOR UNKNOWN INDICATION
     Dosage: 2 TABS 2 TIMES A DAY
     Dates: start: 20150416
  5. BABY ASPIRIN [Concomitant]
     Active Substance: ASPIRIN
     Indication: PRODUCT USED FOR UNKNOWN INDICATION

REACTIONS (9)
  - Dizziness [Unknown]
  - Eating disorder [Not Recovered/Not Resolved]
  - Pancytopenia [Unknown]
  - Diarrhoea [Unknown]
  - Feeling abnormal [Unknown]
  - Urinary incontinence [Unknown]
  - Vomiting [Unknown]
  - Dehydration [Unknown]
  - Asthenia [Unknown]

NARRATIVE: CASE EVENT DATE: 2015
